FAERS Safety Report 4394009-4 (Version None)
Quarter: 2004Q3

REPORT INFORMATION
  Report Type: 
  Country: None (occurrence: None)
  Receive Date: 20040707
  Receipt Date: 20040621
  Transmission Date: 20050211
  Serious: Yes (Death)
  Sender: FDA-Public Use
  Company Number: 8304

PATIENT

DRUGS (4)
  1. CYTARABINE [Suspect]
     Indication: ACUTE MYELOID LEUKAEMIA
     Dosage: 1 G/M2 IV
     Route: 042
  2. FLUCONAZOLE [Concomitant]
  3. VALACYCLOVIR HCL [Concomitant]
  4. SULFAMETHOXAZOLE/TRIMETHOPRIM DS [Concomitant]

REACTIONS (4)
  - NEUTROPENIA [None]
  - PULMONARY HAEMORRHAGE [None]
  - SEPSIS [None]
  - THROMBOCYTOPENIA [None]
